FAERS Safety Report 19375055 (Version 3)
Quarter: 2021Q3

REPORT INFORMATION
  Report Type: Spontaneous
  Country: US (occurrence: US)
  Receive Date: 20210604
  Receipt Date: 20210715
  Transmission Date: 20211014
  Serious: No
  Sender: FDA-Public Use
  Company Number: US-LUPIN PHARMACEUTICALS INC.-2021-08296

PATIENT

DRUGS (2)
  1. AMLODIPINE AND BENAZEPRIL HYDROCHLORIDE CAPSULES USP, 5 MG/40 MG [Suspect]
     Active Substance: AMLODIPINE BESYLATE\BENAZEPRIL HYDROCHLORIDE
     Indication: BLOOD PRESSURE INCREASED
     Dosage: 1 DOSAGE FORM
     Route: 065
     Dates: start: 20210503, end: 20210525
  2. AMLODIPINE AND BENAZEPRIL HYDROCHLORIDE CAPSULES USP, 5 MG/40 MG [Suspect]
     Active Substance: AMLODIPINE BESYLATE\BENAZEPRIL HYDROCHLORIDE
     Dosage: 2 DOSAGE FORM
     Route: 065

REACTIONS (10)
  - Headache [Recovering/Resolving]
  - Nocturia [Unknown]
  - Sleep deficit [Unknown]
  - Obesity [Unknown]
  - Insulin resistance [Unknown]
  - Hypertension [Recovering/Resolving]
  - Insomnia [Unknown]
  - Extra dose administered [Unknown]
  - Sleep apnoea syndrome [Unknown]
  - Fatigue [Unknown]

NARRATIVE: CASE EVENT DATE: 2021
